FAERS Safety Report 13932092 (Version 10)
Quarter: 2018Q2

REPORT INFORMATION
  Report Type: Spontaneous
  Country: US (occurrence: US)
  Receive Date: 20170904
  Receipt Date: 20180615
  Transmission Date: 20180711
  Serious: Yes (Other)
  Sender: FDA-Public Use
  Company Number: US-PFIZER INC-2017377589

PATIENT
  Age: 72 Year
  Sex: Female
  Weight: 77 kg

DRUGS (50)
  1. IBRANCE [Suspect]
     Active Substance: PALBOCICLIB
     Dosage: 100 MG, 1X/DAY
     Dates: start: 201704
  2. LETROZOLE. [Concomitant]
     Active Substance: LETROZOLE
     Indication: NEOPLASM MALIGNANT
     Dosage: 2.5 MG, 1X/DAY (NIGHT)
     Dates: start: 201610
  3. PRADAXA [Concomitant]
     Active Substance: DABIGATRAN ETEXILATE MESYLATE
     Dosage: UNK
     Dates: start: 201309
  4. ALPRAZOLAM. [Concomitant]
     Active Substance: ALPRAZOLAM
     Dosage: 0.25 MG, AS NEEDED (1 TABLET AT BEDTIME)
     Route: 048
  5. XANAX [Concomitant]
     Active Substance: ALPRAZOLAM
     Dosage: 0.25 MG, 2X/DAY
     Route: 048
  6. XGEVA [Suspect]
     Active Substance: DENOSUMAB
     Indication: BONE DENSITY ABNORMAL
     Dosage: UNK, MONTHLY
     Dates: start: 201611
  7. PRADAXA [Concomitant]
     Active Substance: DABIGATRAN ETEXILATE MESYLATE
     Dosage: UNK
     Dates: start: 201310
  8. DILTIAZEM HCL [Concomitant]
     Active Substance: DILTIAZEM HYDROCHLORIDE
     Dosage: 180 MG, DAILY
     Route: 048
  9. AMOXICILLIN/CLAV POT [Concomitant]
     Dosage: 1 DF, 2X/DAY  [(AMOXICILLIN TRIHYDRATE: 875MG)/(CLAVULANATE POTASSIUM: 125MG)]
     Route: 048
  10. CALCIUM [Concomitant]
     Active Substance: CALCIUM
     Dosage: 1500 MG, DAILY
  11. ESCITALOPRAM [Concomitant]
     Active Substance: ESCITALOPRAM OXALATE
     Dosage: 10 MG, DAILY (1 TABLET EVERY DAY)
     Route: 048
  12. SODIUM CHLORIDE. [Concomitant]
     Active Substance: SODIUM CHLORIDE
     Dosage: 250 UNK, UNK (ONCE NOW)
     Route: 042
  13. IBRANCE [Suspect]
     Active Substance: PALBOCICLIB
     Indication: LUNG CANCER METASTATIC
     Dosage: 125 MG, CYCLIC (STARTED AT 125 MG 1 CAPSULE Q DAY FOR 21 DAYS)
     Route: 048
     Dates: start: 20161020, end: 2016
  14. IBRANCE [Suspect]
     Active Substance: PALBOCICLIB
     Dosage: 125 MG, CYCLIC (ONCE A DAY FOR 21 DAY PLAN)
     Dates: start: 20161101
  15. IBRANCE [Suspect]
     Active Substance: PALBOCICLIB
     Dosage: 75 MG, 1X/DAY
     Route: 048
     Dates: start: 201708
  16. IBRANCE [Suspect]
     Active Substance: PALBOCICLIB
     Dosage: 75 MG, 1X/DAY
     Route: 048
     Dates: start: 201711
  17. IBRANCE [Suspect]
     Active Substance: PALBOCICLIB
     Dosage: 75 MG, UNK
     Dates: start: 201710
  18. LETROZOLE. [Concomitant]
     Active Substance: LETROZOLE
     Dosage: 2.5 MG, DAILY
     Route: 048
  19. ESCITALOPRAM OXALATE. [Concomitant]
     Active Substance: ESCITALOPRAM OXALATE
     Dosage: 10 MG, 1X/DAY (AT BEDTIME)
     Route: 048
  20. BRIMONIDINE;TIMOLOL [Concomitant]
     Dosage: 1 GTT, UNK (SPECIAL INSTRUCTIONS)
     Route: 047
  21. SENNA LAXATIVE AND DOCUSATE SODIUM [Concomitant]
     Dosage: 2 DF, AS NEEDED [(SENNOSIDES: 8.6 MG)/ (DOCUSATE SODIUM: 50MG)], 2 TAB IN THE MORNING PRN
     Route: 048
  22. OXYCODONE [Concomitant]
     Active Substance: OXYCODONE
     Dosage: 5 MG, AS NEEDED (1 TABLET EVERY 4 HOURS)
  23. VANCOMYCIN [Concomitant]
     Active Substance: VANCOMYCIN
     Indication: EVIDENCE BASED TREATMENT
     Dosage: 1000 MG, UNK [ONCE NOW]
     Route: 042
  24. IBRANCE [Suspect]
     Active Substance: PALBOCICLIB
     Dosage: 100 MG, UNK
     Dates: start: 201709
  25. IBRANCE [Suspect]
     Active Substance: PALBOCICLIB
     Dosage: 75 MG, CYCLIC (1 TIME DAILY FOR 14DAYS ON, FOLLOWED BY 14 DAYS OFF)
     Route: 048
  26. PRADAXA [Concomitant]
     Active Substance: DABIGATRAN ETEXILATE MESYLATE
     Dosage: 150 MG, 2X/DAY
     Route: 048
  27. DEXAMETHASONE. [Concomitant]
     Active Substance: DEXAMETHASONE
     Dosage: 4 MG, 2X/DAY
     Route: 048
  28. CALCIUM CARBONATE. [Concomitant]
     Active Substance: CALCIUM CARBONATE
     Dosage: 500 MG, UNK
     Route: 048
  29. CALCIUM CARBONATE. [Concomitant]
     Active Substance: CALCIUM CARBONATE
     Dosage: 1000 MG, AS NEEDED [AFTER MEALS ]
     Route: 048
  30. ZOSYN [Concomitant]
     Active Substance: PIPERACILLIN SODIUM\TAZOBACTAM SODIUM
     Dosage: 4.5 G, UNK [ONCE NOW]
     Route: 042
  31. XGEVA [Suspect]
     Active Substance: DENOSUMAB
     Indication: BONE DENSITY INCREASED
     Dosage: UNK (1 EVERY 3 MO)
     Dates: start: 201711
  32. XGEVA [Suspect]
     Active Substance: DENOSUMAB
     Indication: METASTASES TO BONE
     Dosage: 1 SHOT EVERY 3 MONTH
     Dates: start: 201611
  33. PRADAXA [Concomitant]
     Active Substance: DABIGATRAN ETEXILATE MESYLATE
     Indication: CARDIAC DISORDER
     Dosage: 300 MG, DAILY
     Dates: start: 201309
  34. CARDIZEM CD [Concomitant]
     Active Substance: DILTIAZEM HYDROCHLORIDE
     Dosage: 180 MG, DAILY
     Dates: start: 201309
  35. SIMVASTATIN. [Concomitant]
     Active Substance: SIMVASTATIN
     Dosage: 10 MG, 1X/DAY (AT BEDTIME)
     Route: 048
  36. SIMVASTATIN. [Concomitant]
     Active Substance: SIMVASTATIN
     Dosage: 10 MG, DAILY
     Route: 048
  37. IBRANCE [Suspect]
     Active Substance: PALBOCICLIB
     Dosage: 125 MG, 1X/DAY
     Dates: start: 201611
  38. CARTIA XT [Concomitant]
     Active Substance: DILTIAZEM HYDROCHLORIDE
     Dosage: 180 MG, DAILY
     Dates: start: 201309
  39. CARTIA XT [Concomitant]
     Active Substance: DILTIAZEM HYDROCHLORIDE
     Dosage: UNK
     Dates: start: 201309
  40. FAMOTIDINE. [Concomitant]
     Active Substance: FAMOTIDINE
     Dosage: 20 MG, 2X/DAY
     Route: 048
  41. DABIGATRAN ETEXILATE [Concomitant]
     Active Substance: DABIGATRAN ETEXILATE
     Dosage: 150 MG, 2X/DAY
     Route: 048
  42. LASIX [Concomitant]
     Active Substance: FUROSEMIDE
     Dosage: 20 MG, AS NEEDED [PO DAILY ]
     Route: 048
  43. LATANOPROST. [Concomitant]
     Active Substance: LATANOPROST
     Dosage: UNK UNK, 1X/DAY (DROP IN BILAT EYES ONCE DAILY AT NIGHT TIME)
     Route: 047
  44. IBRANCE [Suspect]
     Active Substance: PALBOCICLIB
     Dosage: 100 MG, UNK
     Dates: start: 20170719
  45. XGEVA [Suspect]
     Active Substance: DENOSUMAB
     Dosage: 120 MG, EVERY 3 MONTHS
     Route: 058
  46. AMIODARONE [Concomitant]
     Active Substance: AMIODARONE
     Dosage: 400 MG, 3X/DAY
     Route: 048
  47. OXYCODONE [Concomitant]
     Active Substance: OXYCODONE
     Dosage: 5 MG, AS NEEDED [1 TABLET(S) EVERY 4 HOURS PRN SPECIAL INSTRUCTIONS: MAY TAKE ONE TO TWO TABLETS]
     Route: 048
  48. OXYCODONE [Concomitant]
     Active Substance: OXYCODONE
     Dosage: 5 MG, UNK [TAKE 1 TABLET(S) EVERY 4 HOURS BY ORAL ROUTE]
     Route: 048
  49. FEMARA [Concomitant]
     Active Substance: LETROZOLE
     Indication: NEOPLASM MALIGNANT
     Dosage: 2.5 MG, 1X/DAY
     Dates: start: 201610
  50. DILTIAZEM CD [Concomitant]
     Active Substance: DILTIAZEM
     Dosage: 180 MG, DAILY (1 CAPSULE EVERY DAY)
     Route: 048

REACTIONS (19)
  - Pancytopenia [Unknown]
  - Atrial fibrillation [Unknown]
  - Cytopenia [Unknown]
  - Product use in unapproved indication [Recovered/Resolved]
  - Breath sounds abnormal [Unknown]
  - Depression [Unknown]
  - Blood calcium decreased [Recovered/Resolved]
  - Hypotension [Recovered/Resolved]
  - Neoplasm progression [Unknown]
  - Pleural effusion [Unknown]
  - Vital functions abnormal [Recovered/Resolved]
  - Palpitations [Unknown]
  - Meningioma [Unknown]
  - Condition aggravated [Unknown]
  - Full blood count decreased [Not Recovered/Not Resolved]
  - Dyspnoea [Unknown]
  - Off label use [Unknown]
  - Fatigue [Not Recovered/Not Resolved]
  - White blood cell count decreased [Not Recovered/Not Resolved]

NARRATIVE: CASE EVENT DATE: 2016
